FAERS Safety Report 19795617 (Version 1)
Quarter: 2021Q3

REPORT INFORMATION
  Report Type: Spontaneous
  Country: US (occurrence: US)
  Receive Date: 20210904
  Receipt Date: 20210904
  Transmission Date: 20211014
  Serious: No
  Sender: FDA-Public Use
  Company Number: None

PATIENT
  Sex: Female
  Weight: 90 kg

DRUGS (2)
  1. ZAFEMY [Suspect]
     Active Substance: ETHINYL ESTRADIOL\NORELGESTROMIN
     Indication: CONTRACEPTION
     Dosage: ?          QUANTITY:1 PATCH(ES);OTHER FREQUENCY:PER WEEK;?
     Route: 062
     Dates: start: 20210826
  2. ZAFEMY [Suspect]
     Active Substance: ETHINYL ESTRADIOL\NORELGESTROMIN
     Indication: ENDOMETRIOSIS
     Dosage: ?          QUANTITY:1 PATCH(ES);OTHER FREQUENCY:PER WEEK;?
     Route: 062
     Dates: start: 20210826

REACTIONS (4)
  - Pain [None]
  - Product adhesion issue [None]
  - Chills [None]
  - Headache [None]
